FAERS Safety Report 18216464 (Version 1)
Quarter: 2020Q3

REPORT INFORMATION
  Report Type: Spontaneous
  Country: FR (occurrence: FR)
  Receive Date: 20200901
  Receipt Date: 20200901
  Transmission Date: 20201103
  Serious: Yes (Hospitalization, Other)
  Sender: FDA-Public Use
  Company Number: FR-SA-2020SA230775

PATIENT

DRUGS (13)
  1. LANSOPRAZOLE. [Concomitant]
     Active Substance: LANSOPRAZOLE
     Dosage: 1 DF, HS, 0?0?1
     Route: 048
  2. AUBAGIO [Suspect]
     Active Substance: TERIFLUNOMIDE
     Dosage: UNK
  3. POLYIONIQUE G5 [Concomitant]
     Active Substance: DEXTROSE\POTASSIUM CHLORIDE\SODIUM CHLORIDE
     Dosage: 500 ML, QD
     Route: 042
  4. BUDESONIDE. [Concomitant]
     Active Substance: BUDESONIDE
     Dosage: 2 DF, QD
     Route: 055
  5. HYDROSOL POLYVITAMINE [Concomitant]
     Active Substance: VITAMINS
     Dosage: 25 GTT DROPS, QD, 25?0?0
     Route: 048
  6. INEXIUM [ESOMEPRAZOLE MAGNESIUM] [Concomitant]
     Active Substance: ESOMEPRAZOLE MAGNESIUM
     Dosage: 1 DF, QD
  7. LEVOTHYROX [Concomitant]
     Active Substance: LEVOTHYROXINE
     Dosage: 1 DF, QD, 1?0?0
     Route: 048
  8. CALCIDOSE VITAMINE D [Concomitant]
     Active Substance: CALCIUM\CHOLECALCIFEROL
     Dosage: 2 DF, QD, SACHET, 2?0?0
     Route: 048
  9. ALBUMIN [Concomitant]
     Active Substance: ALBUMIN HUMAN
     Dosage: UNK, 9 BOTTLES OF 200 ML IN TOTAL DURING HIS STAY
     Dates: start: 2020, end: 2020
  10. MEDROL [Concomitant]
     Active Substance: METHYLPREDNISOLONE
     Dosage: 1 G, QD
     Dates: start: 20200116
  11. FAMPYRA [Concomitant]
     Active Substance: DALFAMPRIDINE
     Dosage: 2 DF, QD, 1?0?1
     Route: 048
  12. PHOSPHONEUROS [Concomitant]
     Active Substance: CALCIUM PHOSPHATE, DIBASIC, ANHYDROUS\MAGNESIUM GLYCEROPHOSPHATE\PHOSPHORIC ACID\SODIUM PHOSPHATE, DIBASIC
     Dosage: 100 GTT DROPS, QD, 100?0?0
     Route: 048
  13. MAGNESIUM [Concomitant]
     Active Substance: MAGNESIUM
     Dosage: 1 DF, QD, SACHET, 1?0?0
     Route: 048

REACTIONS (20)
  - Acute respiratory distress syndrome [Unknown]
  - Respiratory alkalosis [Unknown]
  - Citrobacter bacteraemia [Unknown]
  - Escherichia bacteraemia [Unknown]
  - Cholecystitis [Unknown]
  - Hyponatraemia [Unknown]
  - Clostridium difficile colitis [Recovering/Resolving]
  - Urinary tract infection enterococcal [Unknown]
  - Streptococcal bacteraemia [Unknown]
  - Pleural effusion [Unknown]
  - Hyperleukocytosis [Unknown]
  - Septic shock [Unknown]
  - Lower respiratory tract congestion [Unknown]
  - Nosocomial infection [Unknown]
  - Faecaloma [Unknown]
  - Peritonitis [Unknown]
  - Dyspnoea [Unknown]
  - Bronchopneumopathy [Unknown]
  - Hyperkalaemia [Unknown]
  - Enterococcal bacteraemia [Unknown]

NARRATIVE: CASE EVENT DATE: 2020
